FAERS Safety Report 11061583 (Version 1)
Quarter: 2015Q2

REPORT INFORMATION
  Report Type: Spontaneous
  Country: US (occurrence: None)
  Receive Date: 20150422
  Receipt Date: 20150422
  Transmission Date: 20150821
  Serious: Yes (Other)
  Sender: FDA-Public Use
  Company Number: PR7557

PATIENT
  Age: 5 Year
  Sex: Female
  Weight: 16.78 kg

DRUGS (3)
  1. LEVALBUTEROL [Suspect]
     Active Substance: LEVALBUTEROL
     Indication: UPPER RESPIRATORY TRACT INFECTION
     Dates: start: 20150305, end: 20150320
  2. ZITHROMAX [Concomitant]
     Active Substance: AZITHROMYCIN DIHYDRATE
  3. CEFDINIR. [Concomitant]
     Active Substance: CEFDINIR

REACTIONS (6)
  - Treatment noncompliance [None]
  - Left ventricular failure [None]
  - Pyrexia [None]
  - Infection [None]
  - Asthenia [None]
  - Fatigue [None]

NARRATIVE: CASE EVENT DATE: 20150329
